FAERS Safety Report 4759049-1 (Version None)
Quarter: 2005Q3

REPORT INFORMATION
  Report Type: 
  Country: None (occurrence: None)
  Receive Date: 20050901
  Receipt Date: 20050822
  Transmission Date: 20060218
  Serious: Yes (Death, Hospitalization)
  Sender: FDA-Public Use
  Company Number: SK-GLAXOSMITHKLINE-B0392080A

PATIENT
  Age: 24 Year
  Sex: Male

DRUGS (1)
  1. AUGMENTIN '125' [Suspect]
     Indication: VIRAL UPPER RESPIRATORY TRACT INFECTION
     Dosage: 1G TWICE PER DAY
     Route: 048
     Dates: start: 20050323, end: 20050327

REACTIONS (15)
  - ABDOMINAL PAIN [None]
  - ALANINE AMINOTRANSFERASE INCREASED [None]
  - ANOREXIA [None]
  - ASPARTATE AMINOTRANSFERASE INCREASED [None]
  - BLOOD ALKALINE PHOSPHATASE INCREASED [None]
  - BLOOD CREATININE INCREASED [None]
  - BLOOD UREA INCREASED [None]
  - BUDD-CHIARI SYNDROME [None]
  - CYANOSIS [None]
  - DISSEMINATED INTRAVASCULAR COAGULATION [None]
  - FLATULENCE [None]
  - HEPATOMEGALY [None]
  - HEPATORENAL FAILURE [None]
  - NAUSEA [None]
  - PULMONARY EMBOLISM [None]
